FAERS Safety Report 8409517-6 (Version None)
Quarter: 2012Q2

REPORT INFORMATION
  Report Type: 
  Country: None (occurrence: None)
  Receive Date: 20120323
  Receipt Date: 20110209
  Transmission Date: 20120825
  Serious: Yes (Other)
  Sender: FDA-Public Use
  Company Number: 163-21880-11010258

PATIENT
  Age: 50 Year
  Sex: Male

DRUGS (5)
  1. WARFARIN SODIUM [Concomitant]
  2. REVLIMID [Suspect]
     Indication: MULTIPLE MYELOMA
     Dosage: 10 MG, 1 IN 1 D, PO, 10 MG, 1 IN 1 D, PO, 10 MG, DAILY X 21 DAYS, PO
     Route: 048
     Dates: start: 20101213, end: 20101220
  3. REVLIMID [Suspect]
     Indication: MULTIPLE MYELOMA
     Dosage: 10 MG, 1 IN 1 D, PO, 10 MG, 1 IN 1 D, PO, 10 MG, DAILY X 21 DAYS, PO
     Route: 048
     Dates: start: 20110117, end: 20110118
  4. REVLIMID [Suspect]
     Indication: MULTIPLE MYELOMA
     Dosage: 10 MG, 1 IN 1 D, PO, 10 MG, 1 IN 1 D, PO, 10 MG, DAILY X 21 DAYS, PO
     Route: 048
     Dates: start: 20101230
  5. DEXAMETHASONE [Concomitant]

REACTIONS (2)
  - RED BLOOD CELL COUNT DECREASED [None]
  - FULL BLOOD COUNT DECREASED [None]
